FAERS Safety Report 5795249-X (Version None)
Quarter: 2008Q2

REPORT INFORMATION
  Report Type: 
  Country: None (occurrence: None)
  Receive Date: 20080601
  Receipt Date: 20080218
  Transmission Date: 20081010
  Serious: No
  Sender: FDA-Public Use
  Company Number: US200801006539

PATIENT
  Age: 59 Year
  Sex: Female
  Weight: 130.6 kg

DRUGS (5)
  1. BYETTA [Suspect]
     Indication: TYPE 2 DIABETES MELLITUS
     Dosage: 5 UG, 2/D, SUBCUTANEOUS ; 10 UG, 2/D, SUBCUTANEOUS
     Route: 058
     Dates: start: 20080109, end: 20080120
  2. BYETTA [Suspect]
     Indication: TYPE 2 DIABETES MELLITUS
     Dosage: 5 UG, 2/D, SUBCUTANEOUS ; 10 UG, 2/D, SUBCUTANEOUS
     Route: 058
     Dates: start: 20080121
  3. LANTUS [Concomitant]
  4. GLYBURIDE [Concomitant]
  5. INSULIN, REGULAR (INSULIN) [Concomitant]

REACTIONS (3)
  - HYPERGLYCAEMIA [None]
  - NAUSEA [None]
  - WEIGHT DECREASED [None]
